FAERS Safety Report 12997541 (Version 1)
Quarter: 2016Q4

REPORT INFORMATION
  Report Type: Spontaneous
  Country: RO (occurrence: RO)
  Receive Date: 20161205
  Receipt Date: 20161205
  Transmission Date: 20170207
  Serious: Yes (Hospitalization, Other)
  Sender: FDA-Public Use
  Company Number: PHHY2016RO164268

PATIENT
  Age: 68 Year
  Sex: Female
  Weight: 61 kg

DRUGS (1)
  1. VOTRIENT [Suspect]
     Active Substance: PAZOPANIB HYDROCHLORIDE
     Indication: PERIPHERAL NERVE SHEATH TUMOUR MALIGNANT
     Dosage: 800 MG, QD
     Route: 048
     Dates: start: 201607, end: 201609

REACTIONS (4)
  - Gastric perforation [Recovered/Resolved]
  - Subdiaphragmatic abscess [Recovered/Resolved]
  - Ischaemic stroke [Unknown]
  - Product use issue [Unknown]

NARRATIVE: CASE EVENT DATE: 201607
